FAERS Safety Report 8593103-1 (Version None)
Quarter: 2012Q3

REPORT INFORMATION
  Report Type: 
  Country: None (occurrence: None)
  Receive Date: 20120814
  Receipt Date: 20120806
  Transmission Date: 20120928
  Serious: Yes (Hospitalization, Other)
  Sender: FDA-Public Use
  Company Number: ES-JNJFOC-20120605903

PATIENT
  Sex: Male
  Weight: 70 kg

DRUGS (12)
  1. CYCLOSPORINE [Suspect]
     Dosage: DOSE: 3-4 (UNITS UNSPECIFIED)
     Route: 065
     Dates: end: 20040101
  2. METHOTREXATE [Suspect]
     Route: 065
     Dates: start: 20060101
  3. CYCLOSPORINE [Suspect]
     Dosage: DOSE: 1.5 (UNITS UNSPECIFIED)
     Route: 065
     Dates: end: 20080101
  4. CYCLOSPORINE [Suspect]
     Indication: PSORIASIS
     Route: 065
     Dates: start: 20080101, end: 20110308
  5. CYCLOSPORINE [Suspect]
     Dosage: DOSE:1.5 (DOSE UNSPECIFIED)
     Route: 065
  6. ETANERCEPT [Suspect]
     Indication: PSORIASIS
     Dosage: DOSE: 50 (UNITS UNSPECIFIED)
     Route: 065
     Dates: start: 20050101, end: 20060101
  7. REMICADE [Suspect]
     Route: 042
     Dates: start: 20050223
  8. REMICADE [Suspect]
     Indication: PSORIASIS
     Dosage: RECEIVED 45 INFUSIONS IN TOTAL
     Route: 042
     Dates: start: 20120730
  9. REMICADE [Suspect]
     Route: 042
     Dates: end: 20050101
  10. REMICADE [Suspect]
     Route: 042
  11. CYCLOSPORINE [Suspect]
     Dosage: DOSE: 0.8 (UNITS UNSPECIFIED)
     Route: 065
  12. METHOTREXATE [Suspect]
     Indication: PSORIASIS
     Route: 065
     Dates: end: 20040101

REACTIONS (3)
  - PAPULE [None]
  - PNEUMONIA LEGIONELLA [None]
  - HAMARTOMA [None]
